FAERS Safety Report 13685179 (Version 3)
Quarter: 2017Q3

REPORT INFORMATION
  Report Type: Report from Study
  Country: US (occurrence: US)
  Receive Date: 20170623
  Receipt Date: 20170901
  Transmission Date: 20171127
  Serious: No
  Sender: FDA-Public Use
  Company Number: US-009507513-1706USA009453

PATIENT
  Age: 69 Year
  Sex: Female

DRUGS (1)
  1. ZOCOR [Suspect]
     Active Substance: SIMVASTATIN
     Route: 048

REACTIONS (5)
  - Rash [Unknown]
  - Tremor [Unknown]
  - Myalgia [Unknown]
  - Pruritus [Unknown]
  - Cold sweat [Unknown]
